FAERS Safety Report 6023442-X (Version None)
Quarter: 2008Q4

REPORT INFORMATION
  Report Type: 
  Country: None (occurrence: None)
  Receive Date: 20081223
  Receipt Date: 20081211
  Transmission Date: 20090506
  Serious: Yes (Life-Threatening, Hospitalization)
  Sender: FDA-Public Use
  Company Number: 1000001350

PATIENT
  Age: 78 Year
  Sex: Female
  Weight: 62 kg

DRUGS (5)
  1. MEMANTINE HCL [Suspect]
     Indication: DEMENTIA ALZHEIMER'S TYPE
     Dosage: 20 MG (10 MG, 2 IN 1 D), ORAL
     Route: 048
     Dates: start: 20050607, end: 20070922
  2. HYPERIUM [Concomitant]
  3. PRAVASTATIN [Concomitant]
  4. STABLON (TABLETS) [Concomitant]
  5. KARDEGIC [Concomitant]

REACTIONS (1)
  - PANCREATITIS ACUTE [None]
